FAERS Safety Report 6225946-3 (Version None)
Quarter: 2009Q2

REPORT INFORMATION
  Report Type: 
  Country: None (occurrence: None)
  Receive Date: 20090612
  Receipt Date: 20090505
  Transmission Date: 20091009
  Serious: No
  Sender: FDA-Public Use
  Company Number: US-ABBOTT-09P-163-0571696-00

PATIENT
  Sex: Male
  Weight: 131.66 kg

DRUGS (5)
  1. HUMIRA [Suspect]
     Indication: CROHN'S DISEASE
     Dates: start: 20081105
  2. TRAMADOL HCL [Concomitant]
     Indication: PAIN
  3. OMEPRAZOLE [Concomitant]
     Indication: DRUG USE FOR UNKNOWN INDICATION
  4. UNKNOWN MUSCLE RELAXANT [Concomitant]
     Indication: BACK PAIN
  5. UNKNOWN MUSCLE RELAXANT [Concomitant]
     Indication: MUSCLE STRAIN

REACTIONS (6)
  - BACK PAIN [None]
  - DIARRHOEA [None]
  - DIZZINESS [None]
  - MUSCLE STRAIN [None]
  - RASH MACULAR [None]
  - RHINORRHOEA [None]
